FAERS Safety Report 7407063-X (Version None)
Quarter: 2011Q2

REPORT INFORMATION
  Report Type: 
  Country: None (occurrence: None)
  Receive Date: 20110411
  Receipt Date: 20110401
  Transmission Date: 20111010
  Serious: Yes (Other)
  Sender: FDA-Public Use
  Company Number: GB-ROCHE-769164

PATIENT
  Age: 57 Year
  Sex: Female
  Weight: 60 kg

DRUGS (3)
  1. ACTEMRA [Suspect]
     Route: 042
     Dates: start: 20110223
  2. PARACETAMOL [Concomitant]
  3. CALCICHEW D3 [Concomitant]

REACTIONS (8)
  - HEADACHE [None]
  - DERMATITIS [None]
  - NAUSEA [None]
  - OROPHARYNGEAL PAIN [None]
  - WHITE BLOOD CELL COUNT DECREASED [None]
  - CHEST DISCOMFORT [None]
  - LYMPHADENOPATHY [None]
  - SKIN CHAPPED [None]
